FAERS Safety Report 8297524-6 (Version None)
Quarter: 2012Q2

REPORT INFORMATION
  Report Type: 
  Country: None (occurrence: None)
  Receive Date: 20120419
  Receipt Date: 20120412
  Transmission Date: 20120825
  Serious: Yes (Other)
  Sender: FDA-Public Use
  Company Number: PHHY2012JP029740

PATIENT
  Age: 54 Year
  Sex: Female

DRUGS (4)
  1. ZOMETA [Suspect]
     Dosage: 4 MG, UNK (PER ADMINISTRATION)
     Route: 041
     Dates: start: 20120402, end: 20120402
  2. AROMASIN [Suspect]
     Indication: BREAST CANCER
     Dosage: 25 MG, DAILY
     Route: 048
     Dates: start: 20120213
  3. FEMARA [Suspect]
     Indication: BREAST CANCER
     Dosage: 2.5 MG, DAILY
     Route: 048
     Dates: start: 20110912, end: 20120212
  4. ZOMETA [Suspect]
     Indication: METASTASES TO BONE
     Dosage: 4 MG, (PER ADMINSTRATION)
     Route: 041
     Dates: start: 20120305

REACTIONS (5)
  - URTICARIA [None]
  - TUMOUR MARKER INCREASED [None]
  - LACRIMATION INCREASED [None]
  - CONJUNCTIVAL HYPERAEMIA [None]
  - ERYTHEMA [None]
